FAERS Safety Report 5206851-8 (Version None)
Quarter: 2006Q4

REPORT INFORMATION
  Report Type: 
  Country: None (occurrence: None)
  Receive Date: 20061030
  Receipt Date: 20060822
  Transmission Date: 20070319
  Serious: No
  Sender: FDA-Public Use
  Company Number: 256280

PATIENT
  Age: 48 Year
  Sex: Female
  Weight: 69.4 kg

DRUGS (1)
  1. LEVEMIR [Suspect]
     Indication: DIABETES MELLITUS INSULIN-DEPENDENT
     Dosage: AS DIRECTED, SUBCUTANEOUS
     Route: 058
     Dates: start: 20060802, end: 20060803

REACTIONS (3)
  - BLOOD GLUCOSE INCREASED [None]
  - DIZZINESS [None]
  - FLUSHING [None]
